FAERS Safety Report 4493901-X (Version None)
Quarter: 2004Q4

REPORT INFORMATION
  Report Type: 
  Country: None (occurrence: None)
  Receive Date: 20041105
  Receipt Date: 20041027
  Transmission Date: 20050328
  Serious: Yes (Life-Threatening, Hospitalization)
  Sender: FDA-Public Use
  Company Number: CA-JNJFOC-20040903960

PATIENT
  Sex: Female
  Weight: 45.5 kg

DRUGS (4)
  1. REMICADE [Suspect]
     Route: 042
  2. REMICADE [Suspect]
     Route: 042
  3. REMICADE [Suspect]
     Route: 042
  4. PURINETHOL [Suspect]
     Indication: CROHN'S DISEASE
     Route: 049

REACTIONS (6)
  - ASTHENIA [None]
  - DIZZINESS [None]
  - HAEMOGLOBIN DECREASED [None]
  - LEUKOPENIA [None]
  - RED BLOOD CELL COUNT DECREASED [None]
  - VOMITING [None]
